FAERS Safety Report 8833660 (Version 1)
Quarter: 2012Q4

REPORT INFORMATION
  Report Type: 
  Country: BE (occurrence: BE)
  Receive Date: 20121010
  Receipt Date: 20121010
  Transmission Date: 20130627
  Serious: Yes (Death, Other)
  Sender: FDA-Public Use
  Company Number: BE-ROCHE-1131260

PATIENT
  Age: 67 Year
  Sex: Female

DRUGS (3)
  1. AVASTIN [Suspect]
     Indication: BREAST CANCER METASTATIC
     Route: 065
     Dates: start: 201102, end: 201109
  2. TAXOL [Suspect]
     Indication: BREAST CANCER METASTATIC
     Route: 065
     Dates: start: 201102, end: 201109
  3. ZOLEDRONATE [Concomitant]
     Route: 065
     Dates: start: 201102

REACTIONS (2)
  - Disease progression [Fatal]
  - General physical health deterioration [Not Recovered/Not Resolved]
